FAERS Safety Report 19901824 (Version 3)
Quarter: 2021Q4

REPORT INFORMATION
  Report Type: Report from Study
  Country: GB (occurrence: None)
  Receive Date: 20210930
  Receipt Date: 20211202
  Transmission Date: 20220303
  Serious: Yes (Hospitalization)
  Sender: FDA-Public Use
  Company Number: GB-ROCHE-2910192

PATIENT
  Age: 66 Year
  Sex: Female
  Weight: 73.7 kg

DRUGS (14)
  1. BEVACIZUMAB [Suspect]
     Active Substance: BEVACIZUMAB
     Indication: Bile duct cancer
     Route: 042
     Dates: start: 20210727
  2. ATEZOLIZUMAB [Suspect]
     Active Substance: ATEZOLIZUMAB
     Indication: Bile duct cancer
     Dosage: DATE OF RECEIVED MOST RECENT DOSE PRIOR TO AE : 11/AUG/2021
     Route: 041
     Dates: start: 20210727
  3. CISPLATIN [Suspect]
     Active Substance: CISPLATIN
     Indication: Bile duct cancer
     Dosage: ON DAYS 1 AND 8 OF EACH 21-DAY CYCLE FOR CYCLES 1-8 (AS PER PROTOCOL)??DATE OF MOST RECENT DOSE PRIO
     Route: 042
     Dates: start: 20210727
  4. GEMCITABINE [Suspect]
     Active Substance: GEMCITABINE
     Indication: Bile duct cancer
     Dosage: ON DAYS 1 AND 8 OF EACH 21-DAY CYCLE FOR CYCLES 1-8 (AS PER PROTOCOL)?DATE OF MOST RECENT DOSE PRIOR
     Route: 042
     Dates: start: 20210727
  5. ACETAMINOPHEN [Concomitant]
     Active Substance: ACETAMINOPHEN
     Indication: Abdominal pain
     Dates: start: 202105
  6. DOMPERIDONE [Concomitant]
     Active Substance: DOMPERIDONE
     Dates: start: 20210728
  7. DEXAMETHASONE [Concomitant]
     Active Substance: DEXAMETHASONE
     Dates: start: 20210728
  8. APREPITANT [Concomitant]
     Active Substance: APREPITANT
     Dates: start: 20210727
  9. DOCUSATE SODIUM [Concomitant]
     Active Substance: DOCUSATE SODIUM
     Indication: Constipation
     Dates: start: 20210731
  10. COCODAMOL [Concomitant]
     Active Substance: ACETAMINOPHEN\CODEINE PHOSPHATE
     Indication: Abdominal pain
     Dates: start: 20210726
  11. CHLORHEXIDINE [Concomitant]
     Active Substance: CHLORHEXIDINE
     Dates: start: 20210818
  12. GLYCERIN [Concomitant]
     Active Substance: GLYCERIN
     Indication: Constipation
     Dates: start: 20210823
  13. AMOXICILLIN\CLAVULANATE POTASSIUM [Concomitant]
     Active Substance: AMOXICILLIN\CLAVULANATE POTASSIUM
     Indication: Pyrexia
     Dates: start: 20210907, end: 20210913
  14. FLUCLOXACILLIN [Concomitant]
     Active Substance: FLUCLOXACILLIN

REACTIONS (1)
  - Blood culture positive [Recovered/Resolved]

NARRATIVE: CASE EVENT DATE: 20210910
